FAERS Safety Report 24025907 (Version 1)
Quarter: 2024Q2

REPORT INFORMATION
  Report Type: Report from Study
  Country: US (occurrence: US)
  Receive Date: 20240628
  Receipt Date: 20240628
  Transmission Date: 20240716
  Serious: No
  Sender: FDA-Public Use
  Company Number: US-ROCHE-3326588

PATIENT
  Age: 80 Year
  Sex: Male
  Weight: 73.03 kg

DRUGS (1)
  1. ALECENSA [Suspect]
     Active Substance: ALECTINIB HYDROCHLORIDE
     Indication: Lung neoplasm malignant
     Dosage: 3 PILLS IN THE MORNING, 3 PILLS IN THE PM. TAKES WITH WATER AND CRACKERS ;ONGOING: YES
     Route: 048
     Dates: start: 202011

REACTIONS (4)
  - Fluid retention [Unknown]
  - Neuropathy peripheral [Not Recovered/Not Resolved]
  - Blister [Not Recovered/Not Resolved]
  - Weight increased [Unknown]

NARRATIVE: CASE EVENT DATE: 20210201
